FAERS Safety Report 8205396-0 (Version None)
Quarter: 2012Q1

REPORT INFORMATION
  Report Type: 
  Country: None (occurrence: None)
  Receive Date: 20120227
  Receipt Date: 20111108
  Transmission Date: 20120608
  Serious: No
  Sender: FDA-Public Use
  Company Number: 339699

PATIENT
  Age: 63 Year
  Sex: Female

DRUGS (5)
  1. FLUOXETINE [Concomitant]
  2. METFORMIN HYDROCHLORIDE [Concomitant]
  3. VICTOZA [Suspect]
     Indication: TYPE 2 DIABETES MELLITUS
     Dosage: SUBCUTANEOUS
     Route: 058
  4. BENAZEPRIL HYDROCHLORIDE [Concomitant]
  5. ASPIRIN [Concomitant]

REACTIONS (2)
  - VOMITING [None]
  - DIARRHOEA [None]
